FAERS Safety Report 5500429-4 (Version None)
Quarter: 2007Q4

REPORT INFORMATION
  Report Type: 
  Country: None (occurrence: None)
  Receive Date: 20071029
  Receipt Date: 20071018
  Transmission Date: 20080405
  Serious: Yes (Other)
  Sender: FDA-Public Use
  Company Number: CA-JNJFOC-20071004709

PATIENT
  Sex: Male

DRUGS (1)
  1. TRAMACET [Suspect]
     Indication: PROCEDURAL PAIN
     Route: 065

REACTIONS (3)
  - ANGINA PECTORIS [None]
  - ORAL INTAKE REDUCED [None]
  - SOMNOLENCE [None]
